FAERS Safety Report 25025108 (Version 3)
Quarter: 2025Q1

REPORT INFORMATION
  Report Type: Spontaneous
  Country: CO (occurrence: CO)
  Receive Date: 20250228
  Receipt Date: 20250324
  Transmission Date: 20250409
  Serious: Yes (Hospitalization)
  Sender: BIOMARIN
  Company Number: CO-BIOMARINAP-CO-2025-164270

PATIENT

DRUGS (1)
  1. VIMIZIM [Suspect]
     Active Substance: ELOSULFASE ALFA
     Indication: Mucopolysaccharidosis IV
     Dosage: 50 MILLIGRAM, QW
     Route: 042
     Dates: start: 20200703

REACTIONS (3)
  - Ear infection [Not Recovered/Not Resolved]
  - Influenza [Unknown]
  - Cough [Unknown]

NARRATIVE: CASE EVENT DATE: 20250224
